FAERS Safety Report 12205139 (Version 1)
Quarter: 2016Q1

REPORT INFORMATION
  Report Type: Spontaneous
  Country: US (occurrence: US)
  Receive Date: 20160323
  Receipt Date: 20160323
  Transmission Date: 20160526
  Serious: No
  Sender: FDA-Public Use
  Company Number: US-PFIZER INC-2016127576

PATIENT
  Age: 47 Year
  Sex: Male
  Weight: 106.59 kg

DRUGS (1)
  1. VIAGRA [Suspect]
     Active Substance: SILDENAFIL CITRATE
     Dosage: 25 MG, 2X/DAY
     Dates: start: 201511

REACTIONS (2)
  - Inappropriate schedule of drug administration [Unknown]
  - Erection increased [Not Recovered/Not Resolved]
